FAERS Safety Report 19645011 (Version 1)
Quarter: 2021Q3

REPORT INFORMATION
  Report Type: Spontaneous
  Country: US (occurrence: US)
  Receive Date: 20210802
  Receipt Date: 20210802
  Transmission Date: 20211014
  Serious: No
  Sender: FDA-Public Use
  Company Number: US-GLAXOSMITHKLINE-USCH2021049145

PATIENT
  Age: 33 Year
  Sex: Male

DRUGS (1)
  1. ADVIL LIQUI?GELS [Suspect]
     Active Substance: IBUPROFEN
     Indication: BACK PAIN
     Dosage: UNK
     Dates: start: 20210727, end: 20210727

REACTIONS (3)
  - Incorrect dose administered [Recovered/Resolved]
  - Tongue discomfort [Unknown]
  - Oral discomfort [Unknown]

NARRATIVE: CASE EVENT DATE: 20210727
